FAERS Safety Report 15365380 (Version 1)
Quarter: 2018Q3

REPORT INFORMATION
  Report Type: Spontaneous
  Country: US (occurrence: US)
  Receive Date: 20180831
  Receipt Date: 20180831
  Transmission Date: 20181010
  Serious: No
  Sender: FDA-Public Use
  Company Number: None

PATIENT
  Age: 50 Year
  Sex: Female
  Weight: 76.5 kg

DRUGS (14)
  1. CVS HEALTH STERILE SALINE NASAL MIST SODIUM CHLORIDE 0.9% [Suspect]
     Active Substance: SODIUM CHLORIDE
     Indication: SINUSITIS
     Dosage: ?          QUANTITY:2 DF DOSAGE FORM;OTHER ROUTE:NONE?
  2. VITAMIN B12 [Concomitant]
     Active Substance: CYANOCOBALAMIN
  3. PROBIOTIC [Concomitant]
     Active Substance: PROBIOTICS NOS
  4. CRANBERRY SUPPLEMENT [Concomitant]
  5. ENALIPRIL [Concomitant]
  6. VITAMIN E [Concomitant]
     Active Substance: .ALPHA.-TOCOPHEROL
  7. L?LYSEINE [Concomitant]
  8. CVS HEALTH STERILE SALINE NASAL MIST SODIUM CHLORIDE 0.9% [Suspect]
     Active Substance: SODIUM CHLORIDE
     Indication: BRONCHITIS
     Dosage: ?          QUANTITY:2 DF DOSAGE FORM;OTHER ROUTE:NONE?
  9. CVS HEALTH STERILE SALINE NASAL MIST SODIUM CHLORIDE 0.9% [Suspect]
     Active Substance: SODIUM CHLORIDE
     Indication: SINUSITIS
     Dosage: ?          QUANTITY:1 DF DOSAGE FORM;OTHER ROUTE:NONE?
  10. SYNTHROID [Concomitant]
     Active Substance: LEVOTHYROXINE SODIUM
  11. B6 [Concomitant]
     Active Substance: PYRIDOXINE HYDROCHLORIDE
  12. CVS HEALTH STERILE SALINE NASAL MIST SODIUM CHLORIDE 0.9% [Suspect]
     Active Substance: SODIUM CHLORIDE
     Indication: BRONCHITIS
     Dosage: ?          QUANTITY:1 DF DOSAGE FORM;OTHER ROUTE:NONE?
  13. FLINTSTONES MULTI VITAMIN [Concomitant]
  14. PROVERA [Concomitant]
     Active Substance: MEDROXYPROGESTERONE ACETATE

REACTIONS (1)
  - Condition aggravated [None]

NARRATIVE: CASE EVENT DATE: 20180508
